FAERS Safety Report 18124606 (Version 1)
Quarter: 2020Q3

REPORT INFORMATION
  Report Type: Spontaneous
  Country: US (occurrence: US)
  Receive Date: 20200807
  Receipt Date: 20200807
  Transmission Date: 20201103
  Serious: Yes (Hospitalization, Other)
  Sender: FDA-Public Use
  Company Number: US-NOVOPROD-744031

PATIENT
  Age: 61 Year
  Sex: Female

DRUGS (2)
  1. LEVEMIR [Suspect]
     Active Substance: INSULIN DETEMIR
     Indication: TYPE 2 DIABETES MELLITUS
     Dosage: 136 IU, QD
     Route: 058
     Dates: start: 2010
  2. NOVOLOG [Suspect]
     Active Substance: INSULIN ASPART
     Indication: TYPE 2 DIABETES MELLITUS
     Dosage: 94 UNITS PER ON A SLIDING SCALE, 133 MAX UNITS PER DAY,
     Route: 058
     Dates: start: 2010

REACTIONS (3)
  - Cerebrovascular accident [Unknown]
  - Salivary gland neoplasm [Unknown]
  - Blood glucose decreased [Recovered/Resolved]

NARRATIVE: CASE EVENT DATE: 20200618
